FAERS Safety Report 9341627 (Version 2)
Quarter: 2013Q4

REPORT INFORMATION
  Report Type: Spontaneous
  Country: CA (occurrence: None)
  Receive Date: 20130606
  Receipt Date: 20131104
  Transmission Date: 20140711
  Serious: Yes (Hospitalization, Other)
  Sender: FDA-Public Use
  Company Number: VAL_02553_2013

PATIENT
  Age: 60 Year
  Sex: Male

DRUGS (6)
  1. METOPROLOL [Suspect]
     Indication: BLOOD PRESSURE INCREASED
  2. AMLODIPINE (AMLODIPINE) [Suspect]
     Indication: RENAL FAILURE
     Dosage: UNSPEICIFIED DOUBLE DOSE
  3. NITROGLYCERIN [Concomitant]
  4. LENALIDOMIDE [Concomitant]
  5. METFORMINE [Concomitant]
  6. INSULIN [Concomitant]

REACTIONS (7)
  - Compression fracture [None]
  - Rash [None]
  - Urticaria [None]
  - Pruritus [None]
  - Type 2 diabetes mellitus [None]
  - Renal failure [None]
  - Hypertension [None]
